FAERS Safety Report 8999698 (Version 2)
Quarter: 2013Q1

REPORT INFORMATION
  Report Type: Spontaneous
  Country: US (occurrence: US)
  Receive Date: 20130102
  Receipt Date: 20130325
  Transmission Date: 20140127
  Serious: Yes (Other)
  Sender: FDA-Public Use
  Company Number: US-GLAXOSMITHKLINE-A1006551A

PATIENT
  Age: 17 Year
  Sex: Female
  Weight: 55.3 kg

DRUGS (3)
  1. PROMACTA [Suspect]
     Indication: IDIOPATHIC THROMBOCYTOPENIC PURPURA
     Route: 048
     Dates: start: 20110909, end: 20121214
  2. FERROUS SULFATE [Concomitant]
     Indication: IRON DEFICIENCY
  3. ZOFRAN [Concomitant]
     Indication: NAUSEA

REACTIONS (4)
  - Myelofibrosis [Not Recovered/Not Resolved]
  - Platelet count decreased [Not Recovered/Not Resolved]
  - Haemoglobin decreased [Not Recovered/Not Resolved]
  - Nausea [Recovering/Resolving]
